FAERS Safety Report 21590214 (Version 4)
Quarter: 2025Q4

REPORT INFORMATION
  Report Type: Spontaneous
  Country: JP (occurrence: JP)
  Receive Date: 20221114
  Receipt Date: 20251219
  Transmission Date: 20260118
  Serious: Yes (Death, Hospitalization, Other)
  Sender: ELI LILLY AND COMPANY
  Company Number: JP-ELI_LILLY_AND_COMPANY-JP202211004831

PATIENT
  Age: 71 Year
  Sex: Female
  Weight: 70 kg

DRUGS (12)
  1. VERZENIO [Suspect]
     Active Substance: ABEMACICLIB
     Indication: Breast cancer stage IV
     Dosage: 300 MG, UNKNOWN
     Route: 048
     Dates: start: 20220705, end: 20220718
  2. VERZENIO [Suspect]
     Active Substance: ABEMACICLIB
     Dosage: 200 MG, UNKNOWN
     Route: 048
     Dates: start: 20220719, end: 20220801
  3. VERZENIO [Suspect]
     Active Substance: ABEMACICLIB
     Dosage: 100 MG, UNKNOWN
     Route: 048
     Dates: start: 20220809, end: 20220823
  4. VERZENIO [Suspect]
     Active Substance: ABEMACICLIB
     Dosage: UNK
     Route: 048
     Dates: start: 2022, end: 20220905
  5. IBRANCE [Suspect]
     Active Substance: PALBOCICLIB
     Indication: Breast cancer stage IV
     Dosage: 125 MG, UNKNOWN
     Route: 048
     Dates: start: 20220201, end: 20220214
  6. IBRANCE [Suspect]
     Active Substance: PALBOCICLIB
     Dosage: 100 MG, UNKNOWN
     Route: 048
     Dates: start: 20220301, end: 20220321
  7. IBRANCE [Suspect]
     Active Substance: PALBOCICLIB
     Dosage: 75 MG, UNKNOWN
     Route: 048
     Dates: start: 20220329, end: 20220621
  8. LETROZOLE [Suspect]
     Active Substance: LETROZOLE
     Indication: Breast cancer stage IV
     Dosage: 2.5 MG, UNKNOWN
     Route: 048
     Dates: start: 20220201, end: 20220906
  9. MIYA-BM [Concomitant]
     Active Substance: CLOSTRIDIUM BUTYRICUM SPORES STRAIN M-55
     Dosage: UNK
     Dates: end: 20220906
  10. AMLODIPINE [Concomitant]
     Active Substance: AMLODIPINE BESYLATE
     Dosage: UNK
     Dates: end: 20220906
  11. TELMISARTAN [Concomitant]
     Active Substance: TELMISARTAN
     Dosage: UNK
     Dates: end: 20220906
  12. ATORVASTATIN [Concomitant]
     Active Substance: ATORVASTATIN
     Dosage: UNK
     Dates: end: 20220906

REACTIONS (6)
  - Drug-induced liver injury [Fatal]
  - Chilaiditi^s syndrome [Unknown]
  - Hepatic encephalopathy [Recovering/Resolving]
  - Malignant neoplasm progression [Unknown]
  - Systemic candida [Unknown]
  - Faeces pale [Unknown]

NARRATIVE: CASE EVENT DATE: 20220101
